FAERS Safety Report 9631051 (Version 1)
Quarter: 2013Q4

REPORT INFORMATION
  Report Type: Spontaneous
  Country: US (occurrence: None)
  Receive Date: 20131015
  Receipt Date: 20131015
  Transmission Date: 20140711
  Serious: Yes (Hospitalization)
  Sender: FDA-Public Use
  Company Number: 151801

PATIENT
  Age: 64 Year
  Sex: Male
  Weight: 79 kg

DRUGS (1)
  1. LEUCOVORIN CALCIUM [Suspect]
     Indication: COLORECTAL CANCER METASTATIC
     Dosage: DAY 1 EVERY 14 DAYS
     Route: 042
     Dates: start: 20130819

REACTIONS (14)
  - Abdominal pain [None]
  - Decreased appetite [None]
  - Pyrexia [None]
  - Hiccups [None]
  - Gamma-glutamyltransferase increased [None]
  - Blood lactate dehydrogenase increased [None]
  - Blood alkaline phosphatase increased [None]
  - Nausea [None]
  - Hypophagia [None]
  - Asthenia [None]
  - Condition aggravated [None]
  - Fatigue [None]
  - Colorectal cancer metastatic [None]
  - Malignant neoplasm progression [None]
